FAERS Safety Report 19612097 (Version 3)
Quarter: 2023Q1

REPORT INFORMATION
  Report Type: Spontaneous
  Country: CL (occurrence: CL)
  Receive Date: 20210727
  Receipt Date: 20230111
  Transmission Date: 20230417
  Serious: Yes (Hospitalization, Other)
  Sender: FDA-Public Use
  Company Number: CL-LUPIN PHARMACEUTICALS INC.-2021-12674

PATIENT
  Age: 22 Month
  Sex: Male

DRUGS (8)
  1. METHYLPREDNISOLONE [Suspect]
     Active Substance: METHYLPREDNISOLONE
     Indication: Drug reaction with eosinophilia and systemic symptoms
     Dosage: 30 MILLIGRAM/KILOGRAM, BOLUS
     Route: 065
  2. HUMAN IMMUNOGLOBULIN G [Suspect]
     Active Substance: HUMAN IMMUNOGLOBULIN G
     Indication: Drug reaction with eosinophilia and systemic symptoms
     Dosage: 1 GRAM PER KILOGRAM
     Route: 042
  3. VITAMIN K [Suspect]
     Active Substance: PHYTONADIONE
     Indication: Prothrombin time prolonged
     Dosage: 0.5 MILLIGRAM/KILOGRAM
     Route: 065
  4. PHENOBARBITAL [Concomitant]
     Active Substance: PHENOBARBITAL
     Indication: Seizure
     Dosage: UNK
     Route: 065
  5. PREDNISONE [Concomitant]
     Active Substance: PREDNISONE
     Indication: Drug reaction with eosinophilia and systemic symptoms
     Dosage: 1 MILLIGRAM/KILOGRAM, QD
     Route: 065
  6. PREDNISONE [Concomitant]
     Active Substance: PREDNISONE
     Dosage: 2 MILLIGRAM/KILOGRAM, QD (GRADUALLY DECREASED AND STOPPED AFTER 2 MONTHS)
     Route: 065
  7. CYCLOSPORINE [Concomitant]
     Active Substance: CYCLOSPORINE
     Indication: Drug reaction with eosinophilia and systemic symptoms
     Dosage: 5 MILLIGRAM/KILOGRAM, QD
     Route: 065
  8. CYCLOSPORINE [Concomitant]
     Active Substance: CYCLOSPORINE
     Dosage: 10 MILLIGRAM/KILOGRAM, QD (GRADUALLY DECREASED AND STOPPED AFTER 2 MONTHS)
     Route: 065

REACTIONS (2)
  - Acute hepatic failure [Recovering/Resolving]
  - Therapy non-responder [Unknown]
